FAERS Safety Report 10486758 (Version 1)
Quarter: 2014Q3

REPORT INFORMATION
  Report Type: Spontaneous
  Country: US (occurrence: None)
  Receive Date: 20140930
  Receipt Date: 20140930
  Transmission Date: 20150326
  Serious: Yes (Other)
  Sender: FDA-Public Use
  Company Number: None

PATIENT
  Age: 27 Year
  Sex: Female
  Weight: 81.65 kg

DRUGS (1)
  1. TOPAMAX [Suspect]
     Active Substance: TOPIRAMATE
     Indication: VERTIGO
     Dosage: 1 PILL TWICE DAILY TAKEN BY MOUTH
     Route: 048
     Dates: start: 20140729, end: 20140929

REACTIONS (4)
  - Nasopharyngitis [None]
  - Sinusitis [None]
  - Herpes zoster [None]
  - White blood cell count decreased [None]

NARRATIVE: CASE EVENT DATE: 20140913
